FAERS Safety Report 4442265-6 (Version None)
Quarter: 2004Q3

REPORT INFORMATION
  Report Type: 
  Country: None (occurrence: None)
  Receive Date: 20040903
  Receipt Date: 20040716
  Transmission Date: 20050211
  Serious: Yes (Other)
  Sender: FDA-Public Use
  Company Number: 2004UW14797

PATIENT
  Age: 74 Year
  Sex: Male
  Weight: 89.8122 kg

DRUGS (7)
  1. CRESTOR [Suspect]
     Indication: BLOOD TRIGLYCERIDES INCREASED
     Dosage: 10 MG PO
     Route: 048
     Dates: start: 20040709
  2. TWENTY-SEVEN MEDICATIONS [Concomitant]
  3. WATER PILLS [Concomitant]
  4. BETA BLOCKERS [Concomitant]
  5. CALCIUM BLOCKERS [Concomitant]
  6. HEART PILL [Concomitant]
  7. LITTLE RED PILL [Concomitant]

REACTIONS (2)
  - CONSTIPATION [None]
  - GASTROINTESTINAL DISORDER [None]
